FAERS Safety Report 5427711-3 (Version None)
Quarter: 2007Q3

REPORT INFORMATION
  Report Type: 
  Country: None (occurrence: None)
  Receive Date: 20070823
  Receipt Date: 20070810
  Transmission Date: 20080115
  Serious: Yes (Hospitalization)
  Sender: FDA-Public Use
  Company Number: VNL_00718_2007

PATIENT
  Age: 81 Year
  Sex: Female
  Weight: 42.1845 kg

DRUGS (1)
  1. APOKYN [Suspect]
     Indication: PARKINSON'S DISEASE
     Dosage: (0.4 ML 5X/DAY SUBCUTANEOUS)
     Route: 058

REACTIONS (1)
  - FALL [None]
